FAERS Safety Report 8841005 (Version 1)
Quarter: 2012Q4

REPORT INFORMATION
  Report Type: 
  Country: US (occurrence: US)
  Receive Date: 20121015
  Receipt Date: 20121015
  Transmission Date: 20130627
  Serious: Yes (Other)
  Sender: FDA-Public Use
  Company Number: US-PURDUE-USA-2012-0094145

PATIENT
  Age: 55 Year
  Sex: Female

DRUGS (4)
  1. BUTRANS [Suspect]
     Indication: CANCER PAIN
     Dosage: 10 mcg/hr, see text
     Route: 062
     Dates: start: 20120914, end: 20121002
  2. BUTRANS [Interacting]
     Indication: MUSCULOSKELETAL CHEST PAIN
  3. DOCETAXEL [Interacting]
     Indication: BREAST CANCER
     Dosage: 150 mg, see text
     Route: 042
  4. GEMCITABINE [Interacting]
     Indication: BREAST CANCER
     Dosage: 1600 mg, see text
     Route: 042

REACTIONS (2)
  - Drug interaction [Unknown]
  - Supraventricular tachycardia [Recovered/Resolved]
